FAERS Safety Report 17963978 (Version 3)
Quarter: 2020Q3

REPORT INFORMATION
  Report Type: Report from Study
  Country: US (occurrence: US)
  Receive Date: 20200630
  Receipt Date: 20200827
  Transmission Date: 20201103
  Serious: Yes (Other)
  Sender: FDA-Public Use
  Company Number: US-BIOVITRUM-2020US3284

PATIENT
  Age: 23 Year
  Sex: Female

DRUGS (3)
  1. KINERET [Suspect]
     Active Substance: ANAKINRA
     Route: 058
  2. KINERET [Suspect]
     Active Substance: ANAKINRA
     Indication: AUTOIMMUNE LYMPHOPROLIFERATIVE SYNDROME
     Route: 058
     Dates: start: 20180718
  3. KINERET [Suspect]
     Active Substance: ANAKINRA
     Indication: JUVENILE IDIOPATHIC ARTHRITIS
     Dosage: 2.278 ONCE DAILY
     Route: 058
     Dates: start: 20180711

REACTIONS (4)
  - Off label use [Unknown]
  - Illness [Unknown]
  - Stress [Unknown]
  - Cellulitis [Unknown]

NARRATIVE: CASE EVENT DATE: 20180718
